FAERS Safety Report 4460491-7 (Version None)
Quarter: 2004Q3

REPORT INFORMATION
  Report Type: 
  Country: None (occurrence: None)
  Receive Date: 20040923
  Receipt Date: 20040923
  Transmission Date: 20050211
  Serious: Yes (Disabling)
  Sender: FDA-Public Use
  Company Number: None

PATIENT
  Age: 71 Year
  Sex: Male
  Weight: 81.6475 kg

DRUGS (5)
  1. PROSCAR [Suspect]
     Indication: NOCTURIA
     Dosage: 5MG/DAY   ORAL
     Route: 048
     Dates: start: 20040407, end: 20040414
  2. NITROGLYCERIN [Concomitant]
  3. LOVASTATIN [Concomitant]
  4. FOSINOPRIL [Concomitant]
  5. ASPIRIN [Concomitant]

REACTIONS (1)
  - DYSPNOEA [None]
